FAERS Safety Report 6017268-0 (Version None)
Quarter: 2008Q4

REPORT INFORMATION
  Report Type: 
  Country: None (occurrence: None)
  Receive Date: 20081219
  Receipt Date: 20081210
  Transmission Date: 20090506
  Serious: Yes (Other)
  Sender: FDA-Public Use
  Company Number: 2008S1022273

PATIENT
  Age: 45 Year
  Sex: Female

DRUGS (1)
  1. NEBIVOLOL HCL [Suspect]
     Indication: HYPERTENSION
     Dosage: 5 MG; DAILY;ORAL
     Route: 048
     Dates: start: 20070501

REACTIONS (1)
  - WHITE BLOOD CELL COUNT INCREASED [None]
